FAERS Safety Report 5331705-6 (Version None)
Quarter: 2007Q2

REPORT INFORMATION
  Report Type: 
  Country: None (occurrence: None)
  Receive Date: 20070516
  Receipt Date: 20070507
  Transmission Date: 20071010
  Serious: Yes (Hospitalization, Other)
  Sender: FDA-Public Use
  Company Number: 2007AP000492

PATIENT
  Age: 64 Year
  Sex: Male

DRUGS (7)
  1. METFORMIN HCL [Suspect]
     Indication: DIABETES MELLITUS NON-INSULIN-DEPENDENT
     Dosage: 500 MG; BID;
  2. LEVOTHYROXINE SODIUM [Concomitant]
  3. MECLIZINE [Concomitant]
  4. NICOTINIC ACID [Concomitant]
  5. NORTRIPTYLINE HCL [Concomitant]
  6. SIMVASTATIN [Concomitant]
  7. PROMETHAZINE [Concomitant]

REACTIONS (9)
  - ARTERY DISSECTION [None]
  - BALANCE DISORDER [None]
  - BLOOD UREA INCREASED [None]
  - CEREBELLAR INFARCTION [None]
  - HEART RATE INCREASED [None]
  - HYPOVOLAEMIA [None]
  - LACTIC ACIDOSIS [None]
  - PROTEIN URINE PRESENT [None]
  - RESPIRATORY RATE INCREASED [None]
